FAERS Safety Report 19579023 (Version 1)
Quarter: 2021Q3

REPORT INFORMATION
  Report Type: Report from Study
  Country: US (occurrence: US)
  Receive Date: 20210719
  Receipt Date: 20210719
  Transmission Date: 20211014
  Serious: Yes (Hospitalization)
  Sender: FDA-Public Use
  Company Number: US-EISAI MEDICAL RESEARCH-EC-2021-094680

PATIENT
  Age: 75 Year
  Sex: Female

DRUGS (2)
  1. LENVIMA [Suspect]
     Active Substance: LENVATINIB
     Indication: UTERINE CANCER
     Route: 048
     Dates: start: 20210615
  2. METOPROLOL. [Concomitant]
     Active Substance: METOPROLOL

REACTIONS (7)
  - Hypertension [Unknown]
  - Visual impairment [Unknown]
  - Hypoacusis [Unknown]
  - Urinary tract infection [Unknown]
  - Abdominal pain upper [Not Recovered/Not Resolved]
  - Pulmonary embolism [Unknown]
  - Fatigue [Unknown]

NARRATIVE: CASE EVENT DATE: 2021
